FAERS Safety Report 7689379-5 (Version None)
Quarter: 2011Q3

REPORT INFORMATION
  Report Type: 
  Country: None (occurrence: None)
  Receive Date: 20110817
  Receipt Date: 20110815
  Transmission Date: 20111222
  Serious: Yes (Hospitalization, Other)
  Sender: FDA-Public Use
  Company Number: SE-ABBOTT-11P-150-0734418-00

PATIENT
  Sex: Female
  Weight: 59.9 kg

DRUGS (5)
  1. ZEMPLAR [Suspect]
     Indication: PROPHYLAXIS
  2. ZEMPLAR [Suspect]
     Indication: RENAL DISORDER
  3. FRAGMIN [Concomitant]
     Indication: THROMBOSIS PROPHYLAXIS
  4. ZEMPLAR [Suspect]
     Indication: RENAL FAILURE CHRONIC
     Dosage: DAILY DOSE: STARTING- 1 MCG
     Route: 048
     Dates: start: 20110421
  5. ZEMPLAR [Suspect]
     Indication: BLOOD PARATHYROID HORMONE INCREASED

REACTIONS (1)
  - APPENDICITIS [None]
